FAERS Safety Report 19225888 (Version 1)
Quarter: 2021Q2

REPORT INFORMATION
  Report Type: Spontaneous
  Country: US (occurrence: US)
  Receive Date: 20210505
  Receipt Date: 20210505
  Transmission Date: 20210717
  Serious: No
  Sender: FDA-Public Use
  Company Number: US-ROCHE-2682659

PATIENT
  Sex: Male

DRUGS (11)
  1. AVASTIN [Suspect]
     Active Substance: BEVACIZUMAB
     Indication: HYPERLIPIDAEMIA
  2. AVASTIN [Suspect]
     Active Substance: BEVACIZUMAB
     Indication: METASTASIS
     Route: 065
  3. AVASTIN [Suspect]
     Active Substance: BEVACIZUMAB
     Indication: HYPOTHYROIDISM
  4. AVASTIN [Suspect]
     Active Substance: BEVACIZUMAB
     Indication: ARTERIOSCLEROSIS CORONARY ARTERY
  5. AVASTIN [Suspect]
     Active Substance: BEVACIZUMAB
     Indication: SLEEP DISORDER
  6. AVASTIN [Suspect]
     Active Substance: BEVACIZUMAB
     Indication: HYPERTRIGLYCERIDAEMIA
  7. AVASTIN [Suspect]
     Active Substance: BEVACIZUMAB
     Indication: ANTICOAGULANT THERAPY
  8. AVASTIN [Suspect]
     Active Substance: BEVACIZUMAB
     Indication: ESSENTIAL HYPERTENSION
  9. AVASTIN [Suspect]
     Active Substance: BEVACIZUMAB
     Indication: THYROID DISORDER
  10. AVASTIN [Suspect]
     Active Substance: BEVACIZUMAB
     Indication: BLOOD GLUCOSE ABNORMAL
  11. AVASTIN [Suspect]
     Active Substance: BEVACIZUMAB
     Indication: GOUT

REACTIONS (3)
  - No adverse event [Unknown]
  - Off label use [Unknown]
  - Intentional product use issue [Unknown]
